FAERS Safety Report 10364462 (Version 1)
Quarter: 2014Q3

REPORT INFORMATION
  Report Type: Spontaneous
  Country: US (occurrence: None)
  Receive Date: 20140804
  Receipt Date: 20140804
  Transmission Date: 20150326
  Serious: Yes (Hospitalization)
  Sender: FDA-Public Use
  Company Number: None

PATIENT
  Age: 35 Year
  Sex: Female
  Weight: 53.98 kg

DRUGS (1)
  1. MISOPROSTOL. [Suspect]
     Active Substance: MISOPROSTOL
     Indication: INTRA-UTERINE CONTRACEPTIVE DEVICE INSERTION
     Dosage: 2 TABLETS AT BEDIMT VAGINAL
     Route: 067
     Dates: start: 20140728, end: 20140728

REACTIONS (6)
  - Diarrhoea [None]
  - Pain [None]
  - Screaming [None]
  - Dehydration [None]
  - Product quality issue [None]
  - Vomiting [None]

NARRATIVE: CASE EVENT DATE: 20140728
